FAERS Safety Report 7964658-2 (Version None)
Quarter: 2011Q4

REPORT INFORMATION
  Report Type: 
  Country: None (occurrence: None)
  Receive Date: 20111208
  Receipt Date: 20111205
  Transmission Date: 20120403
  Serious: Yes (Death, Hospitalization, Other)
  Sender: FDA-Public Use
  Company Number: US-AMGEN-QUU414418

PATIENT
  Age: 82 Year
  Sex: Female

DRUGS (10)
  1. ACETAMINOPHEN [Concomitant]
     Dosage: UNK UNK, PRN
  2. PANTOPRAZOLE SODIUM [Concomitant]
     Dosage: 40 MG, QD
  3. ACETAMINOPHEN AND OXYCODONE HCL [Concomitant]
     Dosage: UNK UNK, PRN
  4. CALCIUM WITH VITAMIN D [Concomitant]
  5. CLONAZEPAM [Concomitant]
     Dosage: UNK UNK, PRN
  6. SENNA CONCENTRATE [Concomitant]
     Dosage: UNK UNK, BID
  7. ENSURE [Concomitant]
     Dosage: UNK UNK, BID
  8. NPLATE [Suspect]
     Indication: IDIOPATHIC THROMBOCYTOPENIC PURPURA
     Dosage: UNK UNK, UNK
     Dates: start: 20090528
  9. DOCUSATE SODIUM [Concomitant]
     Dosage: 100 MG, BID
  10. MULTI-VITAMINS [Concomitant]

REACTIONS (10)
  - FALL [None]
  - MYELOID LEUKAEMIA [None]
  - BACK PAIN [None]
  - GUILLAIN-BARRE SYNDROME [None]
  - LACERATION [None]
  - CELLULITIS [None]
  - FAILURE TO THRIVE [None]
  - URINARY TRACT INFECTION [None]
  - ASTHENIA [None]
  - WEIGHT DECREASED [None]
